FAERS Safety Report 9669891 (Version 2)
Quarter: 2013Q4

REPORT INFORMATION
  Report Type: Report from Study
  Country: KR (occurrence: KR)
  Receive Date: 20131105
  Receipt Date: 20131105
  Transmission Date: 20140711
  Serious: No
  Sender: FDA-Public Use
  Company Number: PHHY2012KR114593

PATIENT
  Age: 49 Year
  Sex: Female

DRUGS (6)
  1. AMN107 [Suspect]
     Indication: CHRONIC MYELOID LEUKAEMIA
     Dosage: 800 MG, PER DAY
     Route: 048
     Dates: start: 20120802, end: 20120809
  2. AMN107 [Suspect]
     Dosage: 400 MG, PER DAY
     Route: 048
     Dates: start: 20120820, end: 20120928
  3. AMN107 [Suspect]
     Dosage: 200 MG, PER DAY
     Route: 048
     Dates: start: 20120929, end: 20121003
  4. AMN107 [Suspect]
     Dosage: 800 MG, PER DAY
     Route: 048
     Dates: start: 20121004, end: 20130220
  5. ESCITALOPRAM [Concomitant]
     Indication: DEPRESSION
     Dosage: 5 MG, UNK
     Dates: start: 20101025
  6. ALPRAZOLAM [Concomitant]
     Indication: PANIC DISORDER
     Dosage: 0.25 MG, UNK
     Dates: start: 20101028

REACTIONS (1)
  - Myalgia [Recovered/Resolved]
